FAERS Safety Report 25664690 (Version 3)
Quarter: 2025Q4

REPORT INFORMATION
  Report Type: Spontaneous
  Country: US (occurrence: US)
  Receive Date: 20250811
  Receipt Date: 20251001
  Transmission Date: 20260117
  Serious: No
  Sender: CALLIDITAS THERAPEUTICS AB
  Company Number: US-Calliditas-2025CAL02159

PATIENT
  Age: 70 Year
  Sex: Male

DRUGS (16)
  1. TARPEYO [Suspect]
     Active Substance: BUDESONIDE
     Indication: IgA nephropathy
     Route: 048
     Dates: start: 20250607, end: 202509
  2. ALLOPURINOL [Concomitant]
     Active Substance: ALLOPURINOL
  3. AMLODIPINE [Concomitant]
     Active Substance: AMLODIPINE BESYLATE
  4. VITAMIN B12 [Concomitant]
     Active Substance: CYANOCOBALAMIN
  5. ASCORBIC ACID [Concomitant]
     Active Substance: ASCORBIC ACID
  6. ASPIRIN [Concomitant]
     Active Substance: ASPIRIN
  7. CITALOPRAM [Concomitant]
     Active Substance: CITALOPRAM
     Dosage: 20MG/ 10ML
  8. ZETIA [Concomitant]
     Active Substance: EZETIMIBE
  9. FISH OIL, HYDROGENATED [Concomitant]
     Active Substance: FISH OIL, HYDROGENATED
  10. OLMESARTAN [Concomitant]
     Active Substance: OLMESARTAN
  11. SODIUM BICARBONATE [Concomitant]
     Active Substance: SODIUM BICARBONATE
  12. CIALIS [Concomitant]
     Active Substance: TADALAFIL
  13. GLUCOSAMINE [Concomitant]
     Active Substance: GLUCOSAMINE
  14. VITAMIN D NOS [Concomitant]
     Active Substance: CHOLECALCIFEROL\ERGOCALCIFEROL
  15. ARGININE [Concomitant]
     Active Substance: ARGININE
  16. LYSINE [Concomitant]
     Active Substance: LYSINE

REACTIONS (5)
  - Abdominal distension [Unknown]
  - Flatulence [Unknown]
  - Weight increased [Unknown]
  - Muscle spasms [Unknown]
  - Proteinuria [Unknown]
